FAERS Safety Report 23369615 (Version 1)
Quarter: 2024Q1

REPORT INFORMATION
  Report Type: Spontaneous
  Country: CN (occurrence: CN)
  Receive Date: 20240105
  Receipt Date: 20240105
  Transmission Date: 20240410
  Serious: Yes (Death, Hospitalization)
  Sender: FDA-Public Use
  Company Number: CN-Merck Healthcare KGaA-2023497220

PATIENT
  Age: 75 Year
  Sex: Male

DRUGS (5)
  1. ERBITUX [Suspect]
     Active Substance: CETUXIMAB
     Indication: Colon cancer metastatic
     Dosage: .4 G, WEEKLY (1/W)
     Route: 065
     Dates: start: 201907
  2. ERBITUX [Suspect]
     Active Substance: CETUXIMAB
     Dosage: .9 G, INTERVAL  3 WEEK
     Route: 065
     Dates: start: 202009
  3. ERBITUX [Suspect]
     Active Substance: CETUXIMAB
     Dosage: .4 G, WEEKLY (1/W)
     Route: 065
     Dates: start: 202011, end: 202101
  4. OXALIPLATIN [Suspect]
     Active Substance: OXALIPLATIN
     Indication: Colon cancer metastatic
     Dosage: 150 MG, UNK
     Route: 065
     Dates: start: 201907, end: 202101
  5. CAPECITABINE [Concomitant]
     Active Substance: CAPECITABINE
     Indication: Colon cancer metastatic
     Dosage: 1.5 G, UNK
     Route: 065
     Dates: start: 201907, end: 202101

REACTIONS (3)
  - Respiratory failure [Fatal]
  - Interstitial lung disease [Unknown]
  - Off label use [Unknown]

NARRATIVE: CASE EVENT DATE: 20201101
